FAERS Safety Report 17516310 (Version 3)
Quarter: 2025Q3

REPORT INFORMATION
  Report Type: Spontaneous
  Country: EU (occurrence: EU)
  Receive Date: 20200309
  Receipt Date: 20250721
  Transmission Date: 20251020
  Serious: Yes (Death, Life-Threatening, Hospitalization, Other)
  Sender: MYLAN
  Company Number: None

PATIENT
  Age: 71 Year
  Sex: Female
  Weight: 74 kg

DRUGS (6)
  1. OXALIPLATIN [Suspect]
     Active Substance: OXALIPLATIN
     Indication: B-cell lymphoma
  2. CYTARABINE [Suspect]
     Active Substance: CYTARABINE
     Indication: B-cell lymphoma
  3. FLUDARABINE [Suspect]
     Active Substance: FLUDARABINE PHOSPHATE
     Indication: Non-Hodgkin^s lymphoma
  4. CYCLOPHOSPHAMIDE [Suspect]
     Active Substance: CYCLOPHOSPHAMIDE
     Indication: Non-Hodgkin^s lymphoma
  5. GEMCITABINE [Suspect]
     Active Substance: GEMCITABINE
     Indication: B-cell lymphoma
  6. ETOPOSIDE [Suspect]
     Active Substance: ETOPOSIDE
     Indication: B-cell lymphoma

REACTIONS (21)
  - Bone marrow failure [Fatal]
  - Sepsis [Fatal]
  - Metastases to spleen [Fatal]
  - Metastases to lymph nodes [Fatal]
  - Metastases to diaphragm [Fatal]
  - Non-Hodgkin^s lymphoma [Fatal]
  - Metastases to liver [Fatal]
  - Metastases to bone marrow [Fatal]
  - Diffuse large B-cell lymphoma [Fatal]
  - Diffuse large B-cell lymphoma refractory [Fatal]
  - Tooth infection [Unknown]
  - Anaemia [Unknown]
  - Cellulitis [Unknown]
  - Retinal haemorrhage [Unknown]
  - Hydronephrosis [Unknown]
  - Thrombocytopenia [Unknown]
  - Febrile neutropenia [Unknown]
  - Pancytopenia [Unknown]
  - Lung infiltration [Unknown]
  - Colitis [Unknown]
  - Therapeutic product effect decreased [Unknown]

NARRATIVE: CASE EVENT DATE: 20180801
